FAERS Safety Report 6580830-0 (Version None)
Quarter: 2010Q1

REPORT INFORMATION
  Report Type: 
  Country: None (occurrence: None)
  Receive Date: 20100215
  Receipt Date: 20100208
  Transmission Date: 20100710
  Serious: Yes (Hospitalization)
  Sender: FDA-Public Use
  Company Number: US-BIOGENIDEC-2009BI037492

PATIENT
  Age: 59 Year
  Sex: Female

DRUGS (2)
  1. AVONEX [Suspect]
     Indication: MULTIPLE SCLEROSIS
     Route: 030
     Dates: start: 19970901
  2. AVONEX [Suspect]
     Route: 030
     Dates: start: 20090901

REACTIONS (8)
  - FALL [None]
  - HAEMORRHAGE [None]
  - HAND FRACTURE [None]
  - HYPOTENSION [None]
  - ILIUM FRACTURE [None]
  - JOINT DISLOCATION [None]
  - RIB FRACTURE [None]
  - UPPER LIMB FRACTURE [None]
